FAERS Safety Report 8337963-8 (Version None)
Quarter: 2012Q2

REPORT INFORMATION
  Report Type: 
  Country: None (occurrence: None)
  Receive Date: 20120504
  Receipt Date: 20120423
  Transmission Date: 20120825
  Serious: Yes (Hospitalization, Other)
  Sender: FDA-Public Use
  Company Number: US-BRISTOL-MYERS SQUIBB COMPANY-16454753

PATIENT
  Age: 63 Year
  Sex: Female
  Weight: 82 kg

DRUGS (10)
  1. LISINOPRIL [Concomitant]
  2. POTASSIUM CHLORIDE [Concomitant]
  3. METFORMIN HCL [Concomitant]
  4. PROTONIX [Suspect]
     Indication: GASTRITIS
     Dosage: TAB
     Route: 048
     Dates: start: 20030101
  5. TRIAMTERENE [Concomitant]
  6. PROTONIX [Suspect]
     Indication: OESOPHAGITIS
     Dosage: TAB
     Route: 048
     Dates: start: 20030101
  7. ATENOLOL [Concomitant]
  8. INSULIN [Concomitant]
  9. COUMADIN [Suspect]
     Indication: ATRIAL FIBRILLATION
     Dates: start: 19980101
  10. PRAVASTATIN SODIUM [Concomitant]

REACTIONS (6)
  - STAPHYLOCOCCAL INFECTION [None]
  - HAEMORRHAGE [None]
  - URINARY TRACT INFECTION [None]
  - FALL [None]
  - HAND FRACTURE [None]
  - INTERNATIONAL NORMALISED RATIO INCREASED [None]
